FAERS Safety Report 7902892-8 (Version None)
Quarter: 2011Q4

REPORT INFORMATION
  Report Type: 
  Country: None (occurrence: None)
  Receive Date: 20111107
  Receipt Date: 20111026
  Transmission Date: 20120403
  Serious: Yes (Hospitalization, Disabling)
  Sender: FDA-Public Use
  Company Number: 2011SP047557

PATIENT
  Age: 67 Year
  Sex: Female
  Weight: 70 kg

DRUGS (13)
  1. CRESTOR [Concomitant]
  2. TEMISARTAN [Concomitant]
  3. DEXAMETHASONE [Concomitant]
  4. MYCOSTATIN [Concomitant]
  5. CARTIA XT [Concomitant]
  6. ACETAMINOPHEN [Concomitant]
  7. METOCLOPRAMIDE [Concomitant]
  8. LEVETIRACETAM [Concomitant]
  9. TEMOZOLOMIDE [Suspect]
     Indication: GLIOMA
     Dosage: 130 MG;PO
     Route: 048
     Dates: start: 20110809, end: 20110923
  10. ESOMEPRAZOLE [Concomitant]
  11. ONDANSETRON [Concomitant]
  12. ACETAMINOPHEN [Concomitant]
  13. TEMAZEPAM [Concomitant]

REACTIONS (2)
  - MUSCULAR WEAKNESS [None]
  - COGNITIVE DISORDER [None]
